FAERS Safety Report 5129173-2 (Version None)
Quarter: 2006Q4

REPORT INFORMATION
  Report Type: 
  Country: None (occurrence: None)
  Receive Date: 20061011
  Receipt Date: 20060925
  Transmission Date: 20070319
  Serious: Yes (Death)
  Sender: FDA-Public Use
  Company Number: JP200609006558

PATIENT
  Age: 53 Year
  Sex: Female

DRUGS (8)
  1. ZYPREXA [Suspect]
     Indication: SCHIZOPHRENIA
     Dosage: SEE IMAGE, ORAL
     Route: 048
     Dates: start: 20060908, end: 20060914
  2. ZYPREXA [Suspect]
     Indication: SCHIZOPHRENIA
     Dosage: SEE IMAGE, ORAL
     Route: 048
     Dates: start: 20060915
  3. LULLAN (PEROSPIRONE HYDROCHLORIDE) TABLET [Concomitant]
  4. CARBAMAZEPINE [Concomitant]
  5. MAGNESIUM OXIDE (MAGNESIUM OXIDE) [Concomitant]
  6. VEGETAMIN A (CHLORPROMAZINE HYDROCHLORIDE, PHENOBARBITAL, PROMETHAZINE [Concomitant]
  7. TRIAZOLAM (TRIAZOLAM) TABLET [Concomitant]
  8. NITRAZEPAM (NITRAZEPAM) TABLET [Concomitant]

REACTIONS (3)
  - CARDIAC FAILURE ACUTE [None]
  - CARDIO-RESPIRATORY ARREST [None]
  - URINARY INCONTINENCE [None]
